FAERS Safety Report 21306067 (Version 1)
Quarter: 2022Q3

REPORT INFORMATION
  Report Type: Spontaneous
  Country: FR (occurrence: FR)
  Receive Date: 20220908
  Receipt Date: 20220908
  Transmission Date: 20221027
  Serious: Yes (Death)
  Sender: FDA-Public Use
  Company Number: None

PATIENT

DRUGS (1)
  1. METHOTREXATE [Suspect]
     Active Substance: METHOTREXATE
     Indication: Ectopic pregnancy
     Dosage: UNIT DOSE :55 MG   , FREQUENCY TIME : 1 TOTAL   , DURATION : 1 DAY
     Dates: start: 20220502, end: 20220502

REACTIONS (1)
  - Foetal death [Fatal]

NARRATIVE: CASE EVENT DATE: 20220801
